FAERS Safety Report 5100151-2 (Version None)
Quarter: 2006Q3

REPORT INFORMATION
  Report Type: 
  Country: None (occurrence: None)
  Receive Date: 20060908
  Receipt Date: 20060830
  Transmission Date: 20061208
  Serious: Yes (Hospitalization, Other)
  Sender: FDA-Public Use
  Company Number: US-ABBOTT-06P-163-0342738-00

PATIENT
  Sex: Female

DRUGS (8)
  1. DEPACON [Suspect]
     Indication: EPILEPSY
  2. ENBREL [Interacting]
     Indication: RHEUMATOID ARTHRITIS
     Route: 058
     Dates: start: 20050801
  3. ISONIAZID [Suspect]
     Indication: TUBERCULOSIS SKIN TEST POSITIVE
  4. CARBAMAZEPINE [Suspect]
     Indication: EPILEPSY
  5. PHENOBARBITAL TAB [Concomitant]
     Indication: DRUG USE FOR UNKNOWN INDICATION
  6. UNSPECIFIED NON-STEROIDAL ANTI-INFLAMMATORY AGENT [Concomitant]
     Indication: DRUG USE FOR UNKNOWN INDICATION
  7. PREDNISONE TAB [Concomitant]
     Indication: DRUG USE FOR UNKNOWN INDICATION
  8. OMEPRAZOLE [Concomitant]
     Indication: DRUG USE FOR UNKNOWN INDICATION

REACTIONS (11)
  - ANTICONVULSANT DRUG LEVEL INCREASED [None]
  - COORDINATION ABNORMAL [None]
  - DEMYELINATION [None]
  - DIZZINESS [None]
  - DRUG INTERACTION [None]
  - DRUG TOXICITY [None]
  - GAIT DISTURBANCE [None]
  - HYPOACUSIS [None]
  - OPTIC NEURITIS [None]
  - TUBERCULOSIS SKIN TEST POSITIVE [None]
  - VIIITH NERVE LESION [None]
